FAERS Safety Report 24704306 (Version 1)
Quarter: 2024Q4

REPORT INFORMATION
  Report Type: Spontaneous
  Country: US (occurrence: US)
  Receive Date: 20241206
  Receipt Date: 20241206
  Transmission Date: 20250115
  Serious: No
  Sender: GREER
  Company Number: US-STALCOR-2024-AER-02356

PATIENT
  Sex: Female
  Weight: 46.72 kg

DRUGS (1)
  1. PALFORZIA [Suspect]
     Active Substance: PEANUT
     Indication: Product used for unknown indication
     Dosage: REACTIVE DOSE, LAST TOLERATED DOSE
     Route: 048

REACTIONS (1)
  - Muscle spasms [Unknown]
